FAERS Safety Report 4267026-2 (Version None)
Quarter: 2004Q1

REPORT INFORMATION
  Report Type: 
  Country: None (occurrence: None)
  Receive Date: 20040107
  Receipt Date: 20031226
  Transmission Date: 20041129
  Serious: Yes (Other)
  Sender: FDA-Public Use
  Company Number: 2003126875

PATIENT
  Age: 19 Month
  Sex: Female
  Weight: 12.7007 kg

DRUGS (1)
  1. INFANT'S PEDIACARE DECONGESTANT AND COUGH DROPS (DEXTROMETHORPHAN, PSE [Suspect]
     Dosage: 0.8 ML DOSE (FREQUENCY UNSPECIFIED), ORAL
     Route: 048
     Dates: start: 20031226, end: 20031226

REACTIONS (2)
  - CONVULSION [None]
  - TREMOR [None]
